FAERS Safety Report 7028849-X (Version None)
Quarter: 2010Q3

REPORT INFORMATION
  Report Type: 
  Country: None (occurrence: None)
  Receive Date: 20100831
  Receipt Date: 20100816
  Transmission Date: 20110219
  Serious: Yes (Death)
  Sender: FDA-Public Use
  Company Number: 2010PROUSA00038

PATIENT
  Age: 83 Year
  Sex: Male

DRUGS (2)
  1. PROVENGE [Suspect]
     Indication: PROSTATE CANCER METASTATIC
     Dosage: 250 ML, SINGLE, INTRAVENOUS
     Route: 042
     Dates: start: 20100723, end: 20100723
  2. PROVENGE [Suspect]
     Dosage: 250 ML, SINGLE, INTRAVENOUS
     Dates: start: 20100806, end: 20100806

REACTIONS (1)
  - MYOCARDIAL INFARCTION [None]
